FAERS Safety Report 9269403 (Version 1)
Quarter: 2013Q2

REPORT INFORMATION
  Report Type: Spontaneous
  Country: DE (occurrence: DE)
  Receive Date: 20130503
  Receipt Date: 20130503
  Transmission Date: 20140414
  Serious: Yes (Hospitalization, Other)
  Sender: FDA-Public Use
  Company Number: DE-UCBSA-084689

PATIENT
  Sex: Female

DRUGS (3)
  1. NEUPRO [Suspect]
     Indication: RESTLESS LEGS SYNDROME
     Dosage: DOSE: 2 MG/24 HOURS
     Dates: start: 2012
  2. IBUPROFEN [Concomitant]
  3. NOVALGIN [Concomitant]

REACTIONS (2)
  - Craniocerebral injury [Unknown]
  - Knee operation [Unknown]
